FAERS Safety Report 14176844 (Version 1)
Quarter: 2017Q4

REPORT INFORMATION
  Report Type: Spontaneous
  Country: US (occurrence: None)
  Receive Date: 20171110
  Receipt Date: 20171110
  Transmission Date: 20180321
  Serious: No
  Sender: FDA-Public Use
  Company Number: None

PATIENT
  Sex: Female

DRUGS (1)
  1. ENBREL [Suspect]
     Active Substance: ETANERCEPT
     Indication: SPINAL OSTEOARTHRITIS
     Route: 058
     Dates: start: 20170906

REACTIONS (5)
  - Nausea [None]
  - Injection site swelling [None]
  - Dry mouth [None]
  - Injection site erythema [None]
  - Fatigue [None]
